FAERS Safety Report 7464243-5 (Version None)
Quarter: 2011Q2

REPORT INFORMATION
  Report Type: 
  Country: None (occurrence: None)
  Receive Date: 20110506
  Receipt Date: 20091027
  Transmission Date: 20111010
  Serious: Yes (Other)
  Sender: FDA-Public Use
  Company Number: DE-GENENTECH-318148

PATIENT
  Age: 85 Year
  Sex: Female

DRUGS (4)
  1. AVASTIN [Suspect]
     Indication: AGE-RELATED MACULAR DEGENERATION
     Dosage: UNK
     Route: 031
  2. LUCENTIS [Suspect]
     Indication: MACULAR DEGENERATION
     Dosage: UNK
     Route: 031
     Dates: start: 20090710
  3. EYE OINTMENT NOS [Concomitant]
     Indication: SWELLING
     Dosage: UNK
  4. EYE DROPS (UNK INGREDIENTS) [Concomitant]
     Indication: SWELLING

REACTIONS (3)
  - BLINDNESS [None]
  - EYE OEDEMA [None]
  - VISUAL ACUITY REDUCED [None]
